FAERS Safety Report 22277239 (Version 1)
Quarter: 2023Q2

REPORT INFORMATION
  Report Type: Spontaneous
  Country: CA (occurrence: CA)
  Receive Date: 20230503
  Receipt Date: 20230503
  Transmission Date: 20230721
  Serious: Yes (Other)
  Sender: FDA-Public Use
  Company Number: CA-AUROBINDO-AUR-APL-2023-032895

PATIENT
  Age: 22 Year
  Sex: Male

DRUGS (3)
  1. GANCICLOVIR [Suspect]
     Active Substance: GANCICLOVIR
     Indication: Retinitis viral
     Dosage: 2 GRAM, EVERY 2 WEEK
     Route: 031
  2. VALACYCLOVIR HYDROCHLORIDE [Suspect]
     Active Substance: VALACYCLOVIR HYDROCHLORIDE
     Indication: Retinitis viral
     Dosage: 2 GRAM, 3 TIMES A DAY
     Route: 048
  3. DIFLUPREDNATE [Suspect]
     Active Substance: DIFLUPREDNATE
     Indication: Retinitis viral
     Dosage: UNK, FOUR TIMES/DAY
     Route: 065

REACTIONS (3)
  - Disease progression [Unknown]
  - Retinitis viral [Unknown]
  - Product use in unapproved indication [Unknown]
